FAERS Safety Report 23701177 (Version 2)
Quarter: 2024Q2

REPORT INFORMATION
  Report Type: Spontaneous
  Country: CN (occurrence: CN)
  Receive Date: 20240403
  Receipt Date: 20240403
  Transmission Date: 20240716
  Serious: Yes (Hospitalization, Disabling, Other)
  Sender: FDA-Public Use
  Company Number: CN-DSJP-DSJ-2024-114339

PATIENT
  Age: 32 Year
  Sex: Female
  Weight: 79.6 kg

DRUGS (1)
  1. TRASTUZUMAB DERUXTECAN [Suspect]
     Active Substance: TRASTUZUMAB DERUXTECAN
     Indication: Breast cancer
     Dosage: 0.2 G, QD
     Route: 041
     Dates: start: 20240201, end: 20240201

REACTIONS (5)
  - Myelosuppression [Unknown]
  - Platelet count decreased [Unknown]
  - Tumour rupture [Unknown]
  - Ecchymosis [Unknown]
  - Poor quality sleep [Unknown]

NARRATIVE: CASE EVENT DATE: 20240219
